FAERS Safety Report 4515071-1 (Version None)
Quarter: 2004Q4

REPORT INFORMATION
  Report Type: 
  Country: None (occurrence: None)
  Receive Date: 20041201
  Receipt Date: 20041112
  Transmission Date: 20050328
  Serious: Yes (Other)
  Sender: FDA-Public Use
  Company Number: 200418784US

PATIENT
  Sex: Female
  Weight: 81.81 kg

DRUGS (5)
  1. DOCETAXEL [Suspect]
     Indication: BREAST CANCER
     Route: 042
     Dates: start: 20041103
  2. NEULASTA [Concomitant]
     Route: 058
     Dates: end: 20041014
  3. SYNTHROID [Concomitant]
     Route: 048
  4. CELEXA [Concomitant]
     Indication: DEPRESSION
  5. QUINAGOLIDE HYDROCHLORIDE [Concomitant]
     Indication: HYPERTENSION
     Dosage: DOSE: 10/12.5

REACTIONS (2)
  - BLOOD POTASSIUM DECREASED [None]
  - DRUG TOXICITY [None]
